FAERS Safety Report 16723269 (Version 2)
Quarter: 2019Q3

REPORT INFORMATION
  Report Type: Spontaneous
  Country: PK (occurrence: PK)
  Receive Date: 20190821
  Receipt Date: 20190830
  Transmission Date: 20191005
  Serious: Yes (Other)
  Sender: FDA-Public Use
  Company Number: PK-SUN PHARMACEUTICAL INDUSTRIES LTD-2019RR-218107

PATIENT
  Age: 22 Year
  Sex: Female

DRUGS (1)
  1. METFORMIN [Suspect]
     Active Substance: METFORMIN HYDROCHLORIDE
     Indication: POLYCYSTIC OVARIES
     Dosage: 500 MILLIGRAM, BID
     Route: 065

REACTIONS (10)
  - Rheumatic fever [Unknown]
  - Migraine [Unknown]
  - Mood altered [Unknown]
  - Pharyngitis [Unknown]
  - Neuralgia [Unknown]
  - Arthralgia [Unknown]
  - Off label use [Unknown]
  - Palpitations [Unknown]
  - Sinusitis [Unknown]
  - Hyperuricaemia [Unknown]
